FAERS Safety Report 17066628 (Version 1)
Quarter: 2019Q4

REPORT INFORMATION
  Report Type: Spontaneous
  Country: US (occurrence: US)
  Receive Date: 20191024
  Receipt Date: 20191024
  Transmission Date: 20200122
  Serious: No
  Sender: FDA-Public Use
  Company Number: None

PATIENT
  Age: 56 Year
  Sex: Male

DRUGS (1)
  1. TRUVADA [Suspect]
     Active Substance: EMTRICITABINE\TENOFOVIR DISOPROXIL FUMARATE
     Dosage: ?          OTHER DOSE:1 TABLET;?
     Route: 048
     Dates: start: 2019

REACTIONS (4)
  - Dehydration [None]
  - Hypotension [None]
  - Dialysis [None]
  - Pancreatic carcinoma [None]

NARRATIVE: CASE EVENT DATE: 20191024
